FAERS Safety Report 7395870-1 (Version None)
Quarter: 2011Q2

REPORT INFORMATION
  Report Type: 
  Country: None (occurrence: None)
  Receive Date: 20110405
  Receipt Date: 20110328
  Transmission Date: 20111010
  Serious: Yes (Hospitalization)
  Sender: FDA-Public Use
  Company Number: CA-AMGEN-CANSP2011013675

PATIENT
  Age: 67 Year
  Sex: Female
  Weight: 63.492 kg

DRUGS (8)
  1. RANITIDINE [Concomitant]
  2. TYLENOL W/ CODEINE NO. 3 [Concomitant]
  3. ENBREL [Suspect]
     Indication: RHEUMATOID ARTHRITIS
     Dosage: 50 MG, QWK
     Dates: start: 20071217
  4. ARAVA [Concomitant]
     Route: 048
  5. DICLOFENAC [Concomitant]
  6. TRAMADOL HCL [Concomitant]
  7. OXYBUTYNIN [Concomitant]
  8. CAPTOPRIL [Concomitant]

REACTIONS (4)
  - KNEE ARTHROPLASTY [None]
  - SEPSIS [None]
  - LOSS OF CONSCIOUSNESS [None]
  - DEVICE RELATED INFECTION [None]
